FAERS Safety Report 5052588-8 (Version None)
Quarter: 2006Q3

REPORT INFORMATION
  Report Type: 
  Country: None (occurrence: None)
  Receive Date: 20060717
  Receipt Date: 20060608
  Transmission Date: 20061208
  Serious: Yes (Other)
  Sender: FDA-Public Use
  Company Number: IN-GLAXOSMITHKLINE-B0427598A

PATIENT
  Age: 32 Year
  Sex: Male

DRUGS (6)
  1. ZIDOVUDINE [Suspect]
     Indication: HIV INFECTION
     Dosage: 600MG PER DAY
     Route: 065
  2. LAMIVUDINE [Suspect]
     Indication: HIV INFECTION
     Dosage: 300MG PER DAY
     Route: 065
  3. NEVIRAPINE [Suspect]
     Indication: HIV INFECTION
     Dosage: 400MG PER DAY
     Route: 065
  4. RIFAMPICIN [Concomitant]
     Indication: LEPROSY
     Dosage: 600MG MONTHLY
     Route: 065
  5. CLOFAZIMINE [Concomitant]
     Indication: LEPROSY
     Dosage: 100MG THREE TIMES PER DAY
     Route: 065
  6. COTRIMOXAZOLE [Concomitant]
     Indication: INFECTION PROPHYLAXIS
     Route: 065

REACTIONS (7)
  - ERYTHEMA [None]
  - IMMUNE RECONSTITUTION SYNDROME [None]
  - LEPROSY [None]
  - NEURITIS [None]
  - OEDEMA [None]
  - PERONEAL NERVE PALSY [None]
  - SKIN LESION [None]
